FAERS Safety Report 5118116-3 (Version None)
Quarter: 2006Q3

REPORT INFORMATION
  Report Type: 
  Country: None (occurrence: None)
  Receive Date: 20060928
  Receipt Date: 20060928
  Transmission Date: 20061208
  Serious: Yes (Life-Threatening, Hospitalization)
  Sender: FDA-Public Use
  Company Number: None

PATIENT
  Age: 86 Year
  Sex: Male

DRUGS (17)
  1. TAXOTERE [Suspect]
     Indication: PANCREATIC CARCINOMA METASTATIC
     Dosage: 57 MILLIGRAM WEEKLY IV DRIP
     Route: 041
     Dates: start: 20060802, end: 20060920
  2. GEMZAR [Suspect]
     Indication: PANCREATIC CARCINOMA METASTATIC
     Dosage: 1140 MILLIGRAM WEEKLY IV DRIP
     Route: 041
     Dates: start: 20060802, end: 20060920
  3. XELODA [Suspect]
     Indication: PANCREATIC CARCINOMA METASTATIC
     Dosage: 1500 MG/M2 DAILY PO
     Route: 048
     Dates: start: 20060802, end: 20060920
  4. COUMADIN [Concomitant]
  5. VERAPAMIL [Concomitant]
  6. FLOMAX [Concomitant]
  7. CIPRO [Concomitant]
  8. CHEMO [Concomitant]
  9. SENNA [Concomitant]
  10. COLACE [Concomitant]
  11. MILK OF MAGNESIA TAB [Concomitant]
  12. ZETIA [Concomitant]
  13. TRIAMTERENE AND HYDROCHLOROTHIAZIDE [Concomitant]
  14. ZOFRAN [Concomitant]
  15. REGLAN [Concomitant]
  16. VICODIN [Concomitant]
  17. PERCOCET [Concomitant]

REACTIONS (2)
  - CORONARY ARTERY DISEASE [None]
  - DUODENAL ULCER HAEMORRHAGE [None]
